FAERS Safety Report 23264770 (Version 1)
Quarter: 2023Q4

REPORT INFORMATION
  Report Type: Spontaneous
  Country: GB (occurrence: GB)
  Receive Date: 20231206
  Receipt Date: 20231206
  Transmission Date: 20240110
  Serious: Yes (Other)
  Sender: FDA-Public Use
  Company Number: GB-CELLTRION INC.-2023GB023266

PATIENT

DRUGS (1)
  1. YUFLYMA [Suspect]
     Active Substance: ADALIMUMAB-AATY
     Indication: Psoriatic arthropathy
     Dosage: 40 MG, Q2WEEKS (ADDITIONAL INFORMATION ON DRUG: THROUGH RHEUMATOLOGY DEPARTMENT PRESCRIBED BY CONSUL
     Dates: start: 20230801

REACTIONS (12)
  - Decreased appetite [Unknown]
  - Diarrhoea [Unknown]
  - Incontinence [Unknown]
  - Depressed mood [Unknown]
  - Cough [Recovering/Resolving]
  - Dysphagia [Recovered/Resolved with Sequelae]
  - Upper respiratory tract infection [Recovered/Resolved]
  - Vomiting [Unknown]
  - Fatigue [Unknown]
  - Headache [Unknown]
  - Chest pain [Unknown]
  - Depression [Unknown]

NARRATIVE: CASE EVENT DATE: 20230812
